FAERS Safety Report 18454704 (Version 1)
Quarter: 2020Q4

REPORT INFORMATION
  Report Type: Report from Study
  Country: CA (occurrence: CA)
  Receive Date: 20201102
  Receipt Date: 20201102
  Transmission Date: 20210114
  Serious: No
  Sender: FDA-Public Use
  Company Number: CA-JNJFOC-20200902843

PATIENT
  Age: 56 Year
  Sex: Female

DRUGS (2)
  1. STELARA [Suspect]
     Active Substance: USTEKINUMAB
     Indication: CROHN^S DISEASE
     Route: 058
  2. STELARA [Suspect]
     Active Substance: USTEKINUMAB
     Route: 042
     Dates: start: 20200708

REACTIONS (4)
  - Fungal infection [Unknown]
  - Onychomycosis [Recovering/Resolving]
  - Diarrhoea [Unknown]
  - Colon neoplasm [Unknown]

NARRATIVE: CASE EVENT DATE: 2020
